FAERS Safety Report 4614710-4 (Version None)
Quarter: 2005Q1

REPORT INFORMATION
  Report Type: 
  Country: None (occurrence: None)
  Receive Date: 20050322
  Receipt Date: 20050310
  Transmission Date: 20050727
  Serious: Yes (Death, Hospitalization)
  Sender: FDA-Public Use
  Company Number: GB-JNJFOC-20041101437

PATIENT

DRUGS (12)
  1. INFLIXIMAB [Suspect]
     Route: 042
  2. METOCLOPRAMIDE [Concomitant]
  3. DIAZEPAM [Concomitant]
  4. MST [Concomitant]
  5. WARFARIN SODIUM [Concomitant]
  6. PREDNISOLONE [Concomitant]
  7. PAROXETINE HCL [Concomitant]
  8. LACTULOSE [Concomitant]
  9. FRUSEMIDE [Concomitant]
  10. LANSOPRAZOLE [Concomitant]
  11. AMLODIPINE [Concomitant]
  12. ORAMORPH SR [Concomitant]

REACTIONS (13)
  - ANXIETY [None]
  - BLOOD PRESSURE INCREASED [None]
  - CONFUSIONAL STATE [None]
  - DECREASED APPETITE [None]
  - DISORIENTATION [None]
  - DYSPNOEA [None]
  - GENERAL PHYSICAL HEALTH DETERIORATION [None]
  - LETHARGY [None]
  - ORAL INTAKE REDUCED [None]
  - OVARIAN CANCER METASTATIC [None]
  - OXYGEN SATURATION DECREASED [None]
  - PALPITATIONS [None]
  - REFUSAL OF TREATMENT BY PATIENT [None]
